FAERS Safety Report 9704433 (Version 2)
Quarter: 2014Q3

REPORT INFORMATION
  Report Type: Spontaneous
  Country: IT (occurrence: IT)
  Receive Date: 20131122
  Receipt Date: 20140702
  Transmission Date: 20150326
  Serious: Yes (Hospitalization)
  Sender: FDA-Public Use
  Company Number: PHHY2013IT133227

PATIENT
  Age: 46 Year
  Sex: Female

DRUGS (2)
  1. ALPRAZOLAM. [Suspect]
     Active Substance: ALPRAZOLAM
     Indication: DRUG ABUSE
     Dosage: 1 MG, ONCE/SINGLE
     Route: 048
     Dates: start: 20130815, end: 20130815
  2. ESOMEPRAZOLE [Suspect]
     Active Substance: ESOMEPRAZOLE
     Indication: DRUG ABUSE
     Dosage: 8 OT, ONCE/SINGLE
     Route: 048
     Dates: start: 20130815, end: 20130815

REACTIONS (3)
  - Drug abuse [Unknown]
  - Sopor [Unknown]
  - Self injurious behaviour [Unknown]

NARRATIVE: CASE EVENT DATE: 20130815
